FAERS Safety Report 14242190 (Version 3)
Quarter: 2018Q1

REPORT INFORMATION
  Report Type: Spontaneous
  Country: IN (occurrence: IN)
  Receive Date: 20171201
  Receipt Date: 20180105
  Transmission Date: 20180508
  Serious: Yes (Other)
  Sender: FDA-Public Use
  Company Number: IN-BEH-2017085507

PATIENT
  Sex: Female

DRUGS (2)
  1. ANTI-D IMMUNOGLOBULIN (INN) [Suspect]
     Active Substance: HUMAN RHO(D) IMMUNE GLOBULIN
     Dosage: 1500 IU, TOT (AFTER SECOND ABORTION)
     Route: 065
  2. ANTI-D IMMUNOGLOBULIN (INN) [Suspect]
     Active Substance: HUMAN RHO(D) IMMUNE GLOBULIN
     Indication: PROPHYLAXIS AGAINST RH ISOIMMUNISATION
     Dosage: 1500 IU, TOT (AFTER FIRST ABORTION)
     Route: 065

REACTIONS (1)
  - Rhesus incompatibility [Unknown]
